FAERS Safety Report 15515951 (Version 2)
Quarter: 2018Q4

REPORT INFORMATION
  Report Type: Report from Study
  Country: US (occurrence: US)
  Receive Date: 20181017
  Receipt Date: 20181103
  Transmission Date: 20190205
  Serious: Yes (Hospitalization, Other)
  Sender: FDA-Public Use
  Company Number: US-TESARO-US-2017TSO00270

PATIENT
  Age: 45 Year
  Sex: Female
  Weight: 54.47 kg

DRUGS (5)
  1. ZEJULA [Suspect]
     Active Substance: NIRAPARIB
     Dosage: 100 MG, QPM
     Route: 048
  2. ZEJULA [Suspect]
     Active Substance: NIRAPARIB
     Indication: OVARIAN CANCER
     Dosage: 300 MG, QD
     Route: 048
     Dates: start: 20170513
  3. ZEJULA [Suspect]
     Active Substance: NIRAPARIB
     Dosage: 100 MG, QD
     Route: 048
     Dates: start: 20170512
  4. ZEJULA [Suspect]
     Active Substance: NIRAPARIB
     Dosage: 100 MG, QD
     Route: 048
  5. ZEJULA [Suspect]
     Active Substance: NIRAPARIB
     Dosage: 100 MG, QD
     Route: 048

REACTIONS (20)
  - Gallbladder neoplasm [Not Recovered/Not Resolved]
  - Constipation [Not Recovered/Not Resolved]
  - Dizziness [Unknown]
  - Feeling abnormal [Recovered/Resolved]
  - Migraine [Not Recovered/Not Resolved]
  - Insomnia [Unknown]
  - Nausea [Unknown]
  - Fatigue [Not Recovered/Not Resolved]
  - Hepatic neoplasm [Unknown]
  - Abdominal discomfort [Unknown]
  - Memory impairment [Unknown]
  - Restless legs syndrome [Unknown]
  - Decreased appetite [Not Recovered/Not Resolved]
  - Vertigo [Unknown]
  - Abdominal pain upper [Not Recovered/Not Resolved]
  - Vomiting [Not Recovered/Not Resolved]
  - Hepatic enzyme increased [Not Recovered/Not Resolved]
  - Headache [Unknown]
  - Malignant neoplasm progression [Not Recovered/Not Resolved]
  - Dyspepsia [Not Recovered/Not Resolved]

NARRATIVE: CASE EVENT DATE: 201705
